FAERS Safety Report 7810514-X (Version None)
Quarter: 2011Q4

REPORT INFORMATION
  Report Type: 
  Country: None (occurrence: None)
  Receive Date: 20111013
  Receipt Date: 20110928
  Transmission Date: 20120403
  Serious: Yes (Other)
  Sender: FDA-Public Use
  Company Number: DE-ROCHE-1000746

PATIENT

DRUGS (2)
  1. MABTHERA [Suspect]
     Indication: TRANSPLANT REJECTION
  2. IMMUNE GLOBULIN NOS [Suspect]
     Indication: TRANSPLANT REJECTION

REACTIONS (1)
  - PNEUMOCYSTIS JIROVECI PNEUMONIA [None]
